FAERS Safety Report 4919888-0 (Version None)
Quarter: 2006Q1

REPORT INFORMATION
  Report Type: 
  Country: None (occurrence: None)
  Receive Date: 20060217
  Receipt Date: 20060207
  Transmission Date: 20060701
  Serious: Yes (Death, Hospitalization, Other)
  Sender: FDA-Public Use
  Company Number: 2005126002

PATIENT
  Age: 47 Year
  Sex: Male
  Weight: 75.5693 kg

DRUGS (7)
  1. NEURONTIN [Suspect]
     Indication: CONVULSION
     Dosage: 900 MG (300 MG, 3 IN 1 D), ORAL
     Route: 048
     Dates: start: 20030303, end: 20040601
  2. NEURONTIN [Suspect]
     Indication: NEURALGIA
     Dosage: 900 MG (300 MG, 3 IN 1 D), ORAL
     Route: 048
     Dates: start: 20030303, end: 20040601
  3. ACETAMINOPHEN [Suspect]
     Indication: OVERDOSE
  4. PERCOCET [Concomitant]
  5. TRAZODONE HCL [Concomitant]
  6. TEGRETOL [Concomitant]
  7. FENTANYL [Concomitant]

REACTIONS (11)
  - BRONCHOPNEUMONIA [None]
  - COMPLETED SUICIDE [None]
  - DRUG INEFFECTIVE [None]
  - HEPATIC FAILURE [None]
  - HEPATIC NECROSIS [None]
  - MULTI-ORGAN FAILURE [None]
  - OVERDOSE [None]
  - PARAESTHESIA [None]
  - PULMONARY CONGESTION [None]
  - PULMONARY OEDEMA [None]
  - SOMNOLENCE [None]
